FAERS Safety Report 9625828 (Version 1)
Quarter: 2013Q4

REPORT INFORMATION
  Report Type: Spontaneous
  Country: US (occurrence: None)
  Receive Date: 20131015
  Receipt Date: 20131015
  Transmission Date: 20140711
  Serious: Yes (Other)
  Sender: FDA-Public Use
  Company Number: None

PATIENT
  Age: 6 Year
  Sex: Male
  Weight: 22.68 kg

DRUGS (1)
  1. MIRALAX [Suspect]
     Indication: CONSTIPATION
     Dosage: 1/2 TSP
     Route: 048
     Dates: start: 20121029, end: 20130101

REACTIONS (3)
  - Constipation [None]
  - Faecal incontinence [None]
  - Tic [None]
